FAERS Safety Report 5086355-6 (Version None)
Quarter: 2006Q3

REPORT INFORMATION
  Report Type: 
  Country: None (occurrence: None)
  Receive Date: 20060703
  Receipt Date: 20060309
  Transmission Date: 20061208
  Serious: No
  Sender: FDA-Public Use
  Company Number: 2006S1002074

PATIENT
  Age: 31 Year
  Sex: Male
  Weight: 99.7913 kg

DRUGS (19)
  1. CLOZAPINE [Suspect]
     Indication: BIPOLAR DISORDER
     Dosage: SEE IMAGE
     Route: 048
     Dates: start: 20030501
  2. CLOZAPINE [Suspect]
     Indication: BIPOLAR I DISORDER
     Dosage: SEE IMAGE
     Route: 048
     Dates: start: 20030501
  3. CLOZAPINE [Suspect]
     Indication: PSYCHOTIC DISORDER
     Dosage: SEE IMAGE
     Route: 048
     Dates: start: 20030501
  4. CLOZAPINE [Suspect]
     Indication: BIPOLAR DISORDER
     Dosage: SEE IMAGE
     Route: 048
     Dates: start: 20030501
  5. CLOZAPINE [Suspect]
     Indication: BIPOLAR I DISORDER
     Dosage: SEE IMAGE
     Route: 048
     Dates: start: 20030501
  6. CLOZAPINE [Suspect]
     Indication: PSYCHOTIC DISORDER
     Dosage: SEE IMAGE
     Route: 048
     Dates: start: 20030501
  7. ZOLPIDEM TARTRATE [Concomitant]
  8. COLECALCIFEROL/CALCIUM [Concomitant]
  9. METFORMIN [Concomitant]
  10. GLUCOSE MONOHYDRATE/ISPAGHULA HUSK [Concomitant]
  11. GABAPENTIN [Concomitant]
  12. IRBESARTAN [Concomitant]
  13. DOCUSATE SODIUM [Concomitant]
  14. HYDROXYZINE [Concomitant]
  15. OLANZAPINE [Concomitant]
  16. LEVOTHYROXINE SODIUM [Concomitant]
  17. NAPROXEN [Concomitant]
  18. MEDROXYPROGESTERONE ACETATE [Concomitant]
  19. BROMOCRIPTINE MESYLATE [Concomitant]

REACTIONS (1)
  - GRANULOCYTOPENIA [None]
